FAERS Safety Report 24366720 (Version 1)
Quarter: 2024Q3

REPORT INFORMATION
  Report Type: Spontaneous
  Country: US (occurrence: US)
  Receive Date: 20240926
  Receipt Date: 20240926
  Transmission Date: 20241016
  Serious: Yes (Other)
  Sender: FRESENIUS KABI
  Company Number: US-FreseniusKabi-FK202414120

PATIENT
  Sex: Male

DRUGS (2)
  1. MORPHINE [Suspect]
     Active Substance: MORPHINE
     Indication: Cancer pain
     Dosage: ROUTE: INTRATHECAL
  2. ZICONOTIDE ACETATE [Suspect]
     Active Substance: ZICONOTIDE ACETATE
     Indication: Cancer pain
     Dosage: ROUTE: INTRATHECAL ?FORM: INFUSION ?100 MCG/ML

REACTIONS (2)
  - Malignant neoplasm progression [Unknown]
  - Off label use [Unknown]
